FAERS Safety Report 7103634-9 (Version None)
Quarter: 2010Q4

REPORT INFORMATION
  Report Type: 
  Country: None (occurrence: None)
  Receive Date: 20101115
  Receipt Date: 20101103
  Transmission Date: 20110411
  Serious: Yes (Other)
  Sender: FDA-Public Use
  Company Number: CO-ELI_LILLY_AND_COMPANY-CO201011001287

PATIENT
  Age: 68 Year
  Sex: Male

DRUGS (2)
  1. ALIMTA [Suspect]
     Dosage: 900 MG, OTHER
     Route: 042
     Dates: start: 20100901
  2. CARBOPLATIN [Concomitant]
     Dosage: 450 MG, OTHER
     Route: 042
     Dates: start: 20100901

REACTIONS (2)
  - MALIGNANT NEOPLASM PROGRESSION [None]
  - MASS [None]
